FAERS Safety Report 6955283 (Version 3)
Quarter: 2012Q4

REPORT INFORMATION
  Report Type: Report from Study
  Country: US (occurrence: US)
  Receive Date: 20090330
  Receipt Date: 20121029
  Transmission Date: 20130627
  Serious: Yes (Hospitalization)
  Sender: FDA-Public Use
  Company Number: US-AMGEN-US339083

PATIENT
  Age: 55 Year
  Sex: Male

DRUGS (1)
  1. ETANERCEPT [Suspect]
     Indication: PSORIASIS
     Dosage: UNK UNK, 2 times/wk
     Route: 058
     Dates: start: 20070612, end: 20080708

REACTIONS (4)
  - White blood cell count increased [Recovered/Resolved]
  - Lipase increased [Recovered/Resolved]
  - Myalgia [Recovered/Resolved]
  - Viral infection [Recovered/Resolved]
